FAERS Safety Report 19889649 (Version 2)
Quarter: 2021Q4

REPORT INFORMATION
  Report Type: Spontaneous
  Country: CN (occurrence: CN)
  Receive Date: 20210928
  Receipt Date: 20211008
  Transmission Date: 20220303
  Serious: Yes (Other)
  Sender: FDA-Public Use
  Company Number: NVSC2021CN216939

PATIENT
  Sex: Male

DRUGS (1)
  1. TRILEPTAL [Suspect]
     Active Substance: OXCARBAZEPINE
     Indication: Epilepsy
     Dosage: 3.5 DF, BID (2 TABLETS IN THE MORNING, 1.5 TABLETS IN THE EVENING)
     Route: 048

REACTIONS (2)
  - Epilepsy [Recovered/Resolved]
  - Drug ineffective [Unknown]
